FAERS Safety Report 7107146-8 (Version None)
Quarter: 2010Q4

REPORT INFORMATION
  Report Type: 
  Country: None (occurrence: None)
  Receive Date: 20101116
  Receipt Date: 20101013
  Transmission Date: 20110411
  Serious: No
  Sender: FDA-Public Use
  Company Number: US-ABBOTT-10P-163-0678055-00

PATIENT
  Sex: Male
  Weight: 76.272 kg

DRUGS (1)
  1. SIMCOR [Suspect]
     Indication: PRODUCT USED FOR UNKNOWN INDICATION
     Dosage: 500/20MG AT BEDTIME
     Dates: start: 20101001, end: 20101009

REACTIONS (8)
  - BACK PAIN [None]
  - ERYTHEMA [None]
  - FALL [None]
  - FEELING HOT [None]
  - FLUSHING [None]
  - PAIN IN EXTREMITY [None]
  - PRURITUS [None]
  - SYNCOPE [None]
